FAERS Safety Report 6526675-9 (Version None)
Quarter: 2009Q4

REPORT INFORMATION
  Report Type: 
  Country: None (occurrence: None)
  Receive Date: 20091214
  Receipt Date: 20081126
  Transmission Date: 20100525
  Serious: Yes (Other)
  Sender: FDA-Public Use
  Company Number: 600074

PATIENT
  Sex: Male

DRUGS (2)
  1. PEGASYS [Suspect]
     Indication: HEPATITIS C VIRUS TEST
     Dates: start: 20080701
  2. COPEGUS [Suspect]
     Indication: HEPATITIS C VIRUS TEST
     Dates: start: 20080701

REACTIONS (1)
  - HYPERTHYROIDISM [None]
